FAERS Safety Report 13624467 (Version 3)
Quarter: 2017Q3

REPORT INFORMATION
  Report Type: Spontaneous
  Country: US (occurrence: US)
  Receive Date: 20170608
  Receipt Date: 20170908
  Transmission Date: 20171127
  Serious: No
  Sender: FDA-Public Use
  Company Number: US-LEO PHARMA-303201

PATIENT
  Sex: Female

DRUGS (1)
  1. PICATO [Suspect]
     Active Substance: INGENOL MEBUTATE
     Indication: ACTINIC KERATOSIS
     Dosage: 1 APPLICATION DAILY, BUT STOPPED AFTER 2 APPLICATIONS DUE TO REACTION, COMPLETED 3 DAYS OF THERAPY.
     Route: 061
     Dates: start: 20170603, end: 20170606

REACTIONS (8)
  - Application site rash [Recovered/Resolved]
  - Application site erythema [Recovered/Resolved]
  - Application site erosion [Recovered/Resolved]
  - Application site swelling [Recovering/Resolving]
  - Inappropriate schedule of drug administration [Unknown]
  - Swelling [Recovering/Resolving]
  - Application site exfoliation [Recovered/Resolved]
  - Application site discharge [Recovered/Resolved]
